FAERS Safety Report 9458160 (Version 3)
Quarter: 2013Q4

REPORT INFORMATION
  Report Type: Spontaneous
  Country: US (occurrence: US)
  Receive Date: 20130814
  Receipt Date: 20131108
  Transmission Date: 20140711
  Serious: Yes (Other)
  Sender: FDA-Public Use
  Company Number: US-BAYER-2013-097020

PATIENT
  Age: 24 Year
  Sex: Female
  Weight: 72.56 kg

DRUGS (1)
  1. MIRENA [Suspect]
     Indication: CONTRACEPTION
     Dosage: 20 ?G/D, CONT
     Route: 015
     Dates: start: 20090223, end: 20130719

REACTIONS (8)
  - Uterine perforation [Recovering/Resolving]
  - Device dislocation [Recovering/Resolving]
  - Vaginal haemorrhage [Recovering/Resolving]
  - Pregnancy with contraceptive device [Unknown]
  - Drug ineffective [None]
  - Road traffic accident [None]
  - Vaginal haemorrhage [None]
  - Abdominal pain [None]
